FAERS Safety Report 8377749-1 (Version None)
Quarter: 2012Q2

REPORT INFORMATION
  Report Type: 
  Country: None (occurrence: None)
  Receive Date: 20120522
  Receipt Date: 20120515
  Transmission Date: 20120825
  Serious: Yes (Other)
  Sender: FDA-Public Use
  Company Number: CH-GLAXOSMITHKLINE-B0802829A

PATIENT
  Age: 80 Year
  Sex: Male
  Weight: 81 kg

DRUGS (4)
  1. ASPIRIN [Concomitant]
     Route: 048
  2. PROMACTA [Suspect]
     Indication: IDIOPATHIC THROMBOCYTOPENIC PURPURA
     Dosage: 25MG PER DAY
     Route: 048
     Dates: start: 20120119, end: 20120323
  3. MARCOUMAR [Concomitant]
     Dosage: 1MG AS REQUIRED
     Route: 048
     Dates: start: 20120206
  4. NEBIVOLOL HCL [Concomitant]
     Route: 048

REACTIONS (4)
  - THROMBOSIS [None]
  - PRURITUS [None]
  - RASH ERYTHEMATOUS [None]
  - DERMATITIS EXFOLIATIVE [None]
